FAERS Safety Report 7789788-X (Version None)
Quarter: 2011Q3

REPORT INFORMATION
  Report Type: 
  Country: None (occurrence: None)
  Receive Date: 20110930
  Receipt Date: 20110701
  Transmission Date: 20111222
  Serious: No
  Sender: FDA-Public Use
  Company Number: US-ASTRAZENECA-2011SE40046

PATIENT
  Age: 75 Year
  Sex: Female

DRUGS (3)
  1. TOPROL-XL [Suspect]
     Route: 048
  2. ARIMIDEX [Suspect]
     Route: 048
  3. NEXIUM [Suspect]
     Route: 048

REACTIONS (1)
  - DEMENTIA ALZHEIMER'S TYPE [None]
